FAERS Safety Report 8451065-1 (Version None)
Quarter: 2012Q2

REPORT INFORMATION
  Report Type: 
  Country: None (occurrence: None)
  Receive Date: 20120613
  Receipt Date: 20120601
  Transmission Date: 20120825
  Serious: Yes (Disabling)
  Sender: FDA-Public Use
  Company Number: 2012SP030150

PATIENT
  Age: 51 Year
  Sex: Female

DRUGS (3)
  1. RIBASPHERE [Suspect]
     Indication: PRODUCT USED FOR UNKNOWN INDICATION
  2. VICTRELIS [Suspect]
     Indication: HEPATITIS C
     Dosage: 800 MG;TID;PO
     Route: 048
     Dates: start: 20120501
  3. PEGASYS [Suspect]
     Indication: PRODUCT USED FOR UNKNOWN INDICATION
     Dosage: 80 MCG

REACTIONS (6)
  - MENTAL IMPAIRMENT [None]
  - HEPATIC PAIN [None]
  - INFLUENZA LIKE ILLNESS [None]
  - DYSGEUSIA [None]
  - FATIGUE [None]
  - ANAEMIA [None]
